FAERS Safety Report 5201423-3 (Version None)
Quarter: 2007Q1

REPORT INFORMATION
  Report Type: 
  Country: None (occurrence: None)
  Receive Date: 20070108
  Receipt Date: 20061227
  Transmission Date: 20070707
  Serious: Yes (Other)
  Sender: FDA-Public Use
  Company Number: JP-PFIZER INC-2006153925

PATIENT
  Age: 70 Year
  Sex: Male

DRUGS (2)
  1. GABAPEN [Suspect]
     Indication: POST HERPETIC NEURALGIA
     Dosage: DAILY DOSE:800MG
     Route: 048
  2. DRUG, UNSPECIFIED [Concomitant]

REACTIONS (3)
  - ATONIC SEIZURES [None]
  - MUSCLE SPASMS [None]
  - MUSCULAR WEAKNESS [None]
